FAERS Safety Report 9492106 (Version 2)
Quarter: 2013Q3

REPORT INFORMATION
  Report Type: Spontaneous
  Country: US (occurrence: US)
  Receive Date: 20130830
  Receipt Date: 20130830
  Transmission Date: 20140515
  Serious: Yes (Hospitalization)
  Sender: FDA-Public Use
  Company Number: US-LUNDBECK-DKLU1086684

PATIENT
  Age: 1 Year
  Sex: Female
  Weight: 13 kg

DRUGS (7)
  1. SABRIL (FOR ORAL SOLUTION) [Suspect]
     Indication: TUBEROUS SCLEROSIS
     Dates: start: 201108
  2. SABRIL (FOR ORAL SOLUTION) [Suspect]
     Indication: MUSCLE SPASMS
     Dates: start: 20111231
  3. SABRIL (FOR ORAL SOLUTION) [Suspect]
     Dates: start: 20111231
  4. SABRIL (FOR ORAL SOLUTION) [Suspect]
     Route: 048
  5. CLEOCIN [Concomitant]
     Indication: PRODUCT USED FOR UNKNOWN INDICATION
     Route: 048
  6. ROXICET [Concomitant]
     Indication: PAIN
     Route: 048
  7. DEPAKENE [Concomitant]
     Indication: PRODUCT USED FOR UNKNOWN INDICATION
     Route: 048

REACTIONS (5)
  - Pneumothorax [Recovered/Resolved]
  - Arthritis bacterial [Recovered/Resolved]
  - Status epilepticus [Recovered/Resolved]
  - Convulsion [Recovered/Resolved]
  - Respiratory tract infection viral [Recovered/Resolved]
